FAERS Safety Report 8966417 (Version 1)
Quarter: 2012Q4

REPORT INFORMATION
  Report Type: Spontaneous
  Country: US (occurrence: None)
  Receive Date: 20121217
  Receipt Date: 20121217
  Transmission Date: 20130627
  Serious: Yes (Death)
  Sender: FDA-Public Use
  Company Number: None

PATIENT
  Age: 67 Year
  Weight: 95.26 kg

DRUGS (1)
  1. METHYLPREDNISOLONE [Suspect]

REACTIONS (2)
  - Meningitis bacterial [None]
  - Coma [None]
